FAERS Safety Report 5062526-X (Version None)
Quarter: 2006Q3

REPORT INFORMATION
  Report Type: 
  Country: None (occurrence: None)
  Receive Date: 20060726
  Receipt Date: 20060711
  Transmission Date: 20061208
  Serious: Yes (Life-Threatening, Other)
  Sender: FDA-Public Use
  Company Number: FR-BRISTOL-MYERS SQUIBB COMPANY-13455175

PATIENT
  Age: 63 Year
  Sex: Female

DRUGS (5)
  1. GLUCOPHAGE [Suspect]
     Route: 048
     Dates: end: 20060710
  2. INSULIN [Concomitant]
  3. AMARYL [Concomitant]
  4. LIPANTHYL [Concomitant]
  5. COTAREG [Concomitant]

REACTIONS (12)
  - BRADYCARDIA [None]
  - DEHYDRATION [None]
  - DIARRHOEA [None]
  - GENERAL PHYSICAL HEALTH DETERIORATION [None]
  - HYPERKALAEMIA [None]
  - HYPOTENSION [None]
  - LACTIC ACIDOSIS [None]
  - MALNUTRITION [None]
  - NAUSEA [None]
  - RENAL FAILURE ACUTE [None]
  - RIB FRACTURE [None]
  - SPEECH DISORDER [None]
